FAERS Safety Report 5819321-0 (Version None)
Quarter: 2008Q3

REPORT INFORMATION
  Report Type: 
  Country: None (occurrence: None)
  Receive Date: 20080723
  Receipt Date: 20080715
  Transmission Date: 20090109
  Serious: Yes (Other)
  Sender: FDA-Public Use
  Company Number: US-MERCK-0807USA03073

PATIENT
  Age: 69 Year
  Sex: Female

DRUGS (5)
  1. JANUVIA [Suspect]
     Indication: TYPE 2 DIABETES MELLITUS
     Route: 048
     Dates: start: 20070524
  2. LIPITOR [Concomitant]
     Route: 065
  3. CADUET [Concomitant]
     Route: 065
  4. PREMARIN [Concomitant]
     Route: 065
  5. MICARDIS [Concomitant]
     Route: 065

REACTIONS (2)
  - ABDOMINAL PAIN UPPER [None]
  - GASTRIC CANCER [None]
